FAERS Safety Report 23236790 (Version 3)
Quarter: 2024Q2

REPORT INFORMATION
  Report Type: Spontaneous
  Country: US (occurrence: US)
  Receive Date: 20231128
  Receipt Date: 20240501
  Transmission Date: 20240716
  Serious: Yes (Hospitalization)
  Sender: FDA-Public Use
  Company Number: US-FreseniusKabi-FK202319011

PATIENT
  Age: 63 Year
  Sex: Male

DRUGS (3)
  1. FLUDARABINE [Suspect]
     Active Substance: FLUDARABINE PHOSPHATE
     Indication: Chemotherapy
     Dosage: 25 MILLIGRAM/SQ. METER, QD, INTRAVENOUS USE?FOA - INFUSION
     Route: 042
     Dates: start: 20230809, end: 20230813
  2. CYCLOPHOSPHAMIDE [Suspect]
     Active Substance: CYCLOPHOSPHAMIDE
     Indication: Chemotherapy
     Dosage: 60 MILLIGRAM/KILOGRAM, QD, INTRAVENOUS USE?FOA - INFUSION
     Route: 042
     Dates: start: 20230807, end: 20230808
  3. INVESTIGATIONAL PRODUCT [Suspect]
     Active Substance: INVESTIGATIONAL PRODUCT
     Indication: B-cell lymphoma refractory
     Dosage: 80 X 10^6 VIABLE CAR-T CELLS, SINGLE, INTRAVENOUS USE
     Route: 042
     Dates: start: 20230817, end: 20230817

REACTIONS (1)
  - Febrile neutropenia [Recovered/Resolved]

NARRATIVE: CASE EVENT DATE: 20231113
